FAERS Safety Report 4848480-1 (Version None)
Quarter: 2005Q4

REPORT INFORMATION
  Report Type: 
  Country: None (occurrence: None)
  Receive Date: 20051115
  Receipt Date: 20050810
  Transmission Date: 20060501
  Serious: No
  Sender: FDA-Public Use
  Company Number: S05-USA-04070-01

PATIENT
  Age: 84 Year
  Sex: Female

DRUGS (5)
  1. NAMENDA [Suspect]
     Indication: MEMORY IMPAIRMENT
     Dosage: 5 MG BID PO
     Route: 048
     Dates: start: 20050804
  2. NAMENDA [Suspect]
     Indication: MEMORY IMPAIRMENT
     Dosage: 5 MG QD PO
     Route: 048
     Dates: start: 20050728, end: 20050803
  3. IBUPROFEN [Concomitant]
  4. NAPROXEN [Concomitant]
  5. ASPIRIN [Concomitant]

REACTIONS (2)
  - ABNORMAL SENSATION IN EYE [None]
  - DIZZINESS [None]
